FAERS Safety Report 4637714-4 (Version None)
Quarter: 2005Q2

REPORT INFORMATION
  Report Type: 
  Country: None (occurrence: None)
  Receive Date: 20050328
  Receipt Date: 20050201
  Transmission Date: 20051028
  Serious: No
  Sender: FDA-Public Use
  Company Number: USA041286237

PATIENT
  Age: 8 Year
  Sex: Male

DRUGS (2)
  1. STRATTERA [Suspect]
  2. ADDERALL 30 [Concomitant]

REACTIONS (1)
  - SUICIDAL IDEATION [None]
